FAERS Safety Report 5965742-5 (Version None)
Quarter: 2008Q4

REPORT INFORMATION
  Report Type: 
  Country: None (occurrence: None)
  Receive Date: 20081125
  Receipt Date: 20081118
  Transmission Date: 20090506
  Serious: Yes (Other)
  Sender: FDA-Public Use
  Company Number: B0542997A

PATIENT
  Age: 9 Year
  Sex: Male
  Weight: 22 kg

DRUGS (5)
  1. RELENZA [Suspect]
     Indication: INFLUENZA
     Dosage: 10MG TWICE PER DAY
     Route: 055
     Dates: start: 20080118, end: 20080122
  2. CALONAL [Concomitant]
     Indication: INFLUENZA
     Route: 048
     Dates: start: 20080117, end: 20080121
  3. ASVERIN [Concomitant]
     Indication: INFLUENZA
     Dosage: .39G PER DAY
     Route: 048
     Dates: start: 20080118, end: 20080121
  4. PERIACTIN [Concomitant]
     Indication: INFLUENZA
     Dosage: .39G PER DAY
     Route: 048
     Dates: start: 20080118, end: 20080121
  5. MUCODYNE [Concomitant]
     Indication: INFLUENZA
     Dosage: 1.2G PER DAY
     Route: 048
     Dates: start: 20080118, end: 20080121

REACTIONS (2)
  - HALLUCINATION [None]
  - HYPERTHERMIA [None]
